FAERS Safety Report 20963653 (Version 1)
Quarter: 2022Q2

REPORT INFORMATION
  Report Type: Spontaneous
  Country: FR (occurrence: FR)
  Receive Date: 20220615
  Receipt Date: 20220615
  Transmission Date: 20220721
  Serious: Yes (Other)
  Sender: FDA-Public Use
  Company Number: None

PATIENT
  Age: 1 Day
  Sex: Female

DRUGS (3)
  1. VENLAFAXINE HCL [Suspect]
     Active Substance: VENLAFAXINE HYDROCHLORIDE
     Dosage: 187.5 MG
     Route: 064
     Dates: end: 20210531
  2. QUETIAPINE [Suspect]
     Active Substance: QUETIAPINE
     Dosage: 250 MG
     Route: 064
     Dates: end: 20210531
  3. PRAZEPAM [Suspect]
     Active Substance: PRAZEPAM
     Dosage: 20 MG
     Route: 064
     Dates: end: 20210531

REACTIONS (3)
  - Maternal exposure during pregnancy [Unknown]
  - Hypotonia neonatal [Not Recovered/Not Resolved]
  - Myoclonus [Recovered/Resolved]

NARRATIVE: CASE EVENT DATE: 20210531
